FAERS Safety Report 8920091 (Version 2)
Quarter: 2012Q4

REPORT INFORMATION
  Report Type: Report from Study
  Country: DE (occurrence: DE)
  Receive Date: 20121121
  Receipt Date: 20121213
  Transmission Date: 20130627
  Serious: Yes (Hospitalization)
  Sender: FDA-Public Use
  Company Number: DE-AMGEN-DEUCT2012074229

PATIENT
  Age: 75 Year
  Sex: Female
  Weight: 80 kg

DRUGS (9)
  1. ETANERCEPT [Suspect]
     Indication: PRODUCT USED FOR UNKNOWN INDICATION
     Dosage: 50 mg, weekly
     Dates: start: 20120402, end: 20121003
  2. ETANERCEPT [Suspect]
     Dosage: 50 mg, weekly
     Dates: start: 20121024
  3. EUTHYROX [Concomitant]
     Indication: HYPERTHYROIDISM
     Dosage: 125 UNK, UNK
  4. EPROSARTAN [Concomitant]
     Indication: HYPERTENSION
     Dosage: UNK
  5. FUROSEMID                          /00032601/ [Concomitant]
     Indication: HYPERTENSION
     Dosage: 40 UNK, UNK
  6. OMEP                               /00661201/ [Concomitant]
     Indication: GASTRITIS
     Dosage: 20 UNK, UNK
  7. BISOPROLOL [Concomitant]
     Indication: HYPERTENSION
     Dosage: 2.5 UNK, UNK
  8. PREDNISOLONE [Concomitant]
     Indication: RHEUMATOID ARTHRITIS
     Dosage: 8 mg, UNK
  9. IBUHEXAL                           /00109201/ [Concomitant]
     Indication: RHEUMATOID ARTHRITIS
     Dosage: 600 mg, UNK

REACTIONS (1)
  - Arthropathy [Unknown]
